FAERS Safety Report 6204324-7 (Version None)
Quarter: 2009Q2

REPORT INFORMATION
  Report Type: 
  Country: None (occurrence: None)
  Receive Date: 20090527
  Receipt Date: 20090522
  Transmission Date: 20091009
  Serious: Yes (Hospitalization, Other)
  Sender: FDA-Public Use
  Company Number: US-AMGEN-US345399

PATIENT
  Sex: Female

DRUGS (7)
  1. NPLATE [Suspect]
     Indication: IDIOPATHIC THROMBOCYTOPENIC PURPURA
     Route: 065
     Dates: start: 20081202
  2. ACTONEL [Concomitant]
     Route: 065
  3. BETAPACE [Concomitant]
     Route: 065
  4. NORCO [Concomitant]
     Route: 065
  5. DIOVAN [Concomitant]
     Route: 065
  6. SOTALOL HYDROCHLORIDE [Concomitant]
     Route: 065
  7. TRICOR [Concomitant]
     Route: 065

REACTIONS (2)
  - BRADYCARDIA [None]
  - PLATELET COUNT DECREASED [None]
